FAERS Safety Report 8264943-3 (Version None)
Quarter: 2012Q2

REPORT INFORMATION
  Report Type: 
  Country: None (occurrence: None)
  Receive Date: 20120404
  Receipt Date: 20120321
  Transmission Date: 20120825
  Serious: Yes (Other)
  Sender: FDA-Public Use
  Company Number: US-1191258

PATIENT
  Sex: Female

DRUGS (2)
  1. EPINEPHRINE [Concomitant]
  2. BSS [Suspect]
     Indication: INTRAOCULAR LENS IMPLANT
     Dosage: (INTRAOCULAR)
     Route: 031
     Dates: start: 20120216, end: 20120216

REACTIONS (3)
  - POST PROCEDURAL COMPLICATION [None]
  - MEDICATION ERROR [None]
  - ENDOPHTHALMITIS [None]
